FAERS Safety Report 16406449 (Version 1)
Quarter: 2019Q2

REPORT INFORMATION
  Report Type: Spontaneous
  Country: JP (occurrence: JP)
  Receive Date: 20190607
  Receipt Date: 20190607
  Transmission Date: 20190711
  Serious: Yes (Hospitalization)
  Sender: FDA-Public Use
  Company Number: PHHY2019JP120910

PATIENT
  Age: 40 Year
  Sex: Female

DRUGS (2)
  1. IMUSERA [Suspect]
     Active Substance: FINGOLIMOD HYDROCHLORIDE
     Indication: MULTIPLE SCLEROSIS
     Dosage: 0.5 MG
     Route: 048
  2. IMUSERA [Suspect]
     Active Substance: FINGOLIMOD HYDROCHLORIDE
     Dosage: 0.5 MG, 5 DAYS/WEEK
     Route: 048

REACTIONS (3)
  - Lymphocyte count decreased [Recovering/Resolving]
  - Cellulitis [Recovered/Resolved]
  - Multiple sclerosis relapse [Recovering/Resolving]
